FAERS Safety Report 4878078-0 (Version None)
Quarter: 2006Q1

REPORT INFORMATION
  Report Type: 
  Country: None (occurrence: None)
  Receive Date: 20060110
  Receipt Date: 20060106
  Transmission Date: 20060701
  Serious: Yes (Other)
  Sender: FDA-Public Use
  Company Number: S05-CAN-05751-01

PATIENT
  Age: 35 Year
  Sex: Male

DRUGS (5)
  1. CIPRALEX (ESCITALOPRAM) [Suspect]
     Indication: ANXIETY
     Dosage: 10 MG QD PO
     Route: 048
     Dates: start: 20050907, end: 20050929
  2. CIPRALEX (ESCITALOPRAM) [Suspect]
     Indication: DEPRESSION
     Dosage: 10 MG QD PO
     Route: 048
     Dates: start: 20050907, end: 20050929
  3. ATIVAN [Concomitant]
  4. COGENTIN [Concomitant]
  5. BENADRYL [Concomitant]

REACTIONS (9)
  - CONFUSIONAL STATE [None]
  - CONVULSION [None]
  - DRUG HYPERSENSITIVITY [None]
  - DRUG SCREEN POSITIVE [None]
  - DRUG WITHDRAWAL SYNDROME [None]
  - HALLUCINATION [None]
  - LABORATORY TEST INTERFERENCE [None]
  - SEROTONIN SYNDROME [None]
  - SUICIDAL IDEATION [None]
